FAERS Safety Report 7364553-6 (Version None)
Quarter: 2011Q1

REPORT INFORMATION
  Report Type: 
  Country: None (occurrence: None)
  Receive Date: 20110321
  Receipt Date: 20110303
  Transmission Date: 20110831
  Serious: Yes (Hospitalization, Other)
  Sender: FDA-Public Use
  Company Number: US-BAYER-201024691NA

PATIENT
  Sex: Female
  Weight: 90.703 kg

DRUGS (6)
  1. VITAMIN D [Concomitant]
     Dosage: 1000 IU, UNK
  2. CALCIUM [Concomitant]
     Dosage: 500 MG, UNK
  3. MEDROL [Concomitant]
  4. FAMVIR [Concomitant]
  5. YASMIN [Suspect]
     Indication: DYSFUNCTIONAL UTERINE BLEEDING
     Dosage: UNK
     Dates: start: 20030901, end: 20070801
  6. MULTI-VITAMIN [Concomitant]

REACTIONS (3)
  - FATIGUE [None]
  - ISCHAEMIC STROKE [None]
  - SPEECH DISORDER [None]
